FAERS Safety Report 5615513-4 (Version None)
Quarter: 2008Q1

REPORT INFORMATION
  Report Type: 
  Country: None (occurrence: None)
  Receive Date: 20080206
  Receipt Date: 20080206
  Transmission Date: 20080703
  Serious: Yes (Other)
  Sender: FDA-Public Use
  Company Number: A0707720A

PATIENT
  Age: 57 Year
  Sex: Female

DRUGS (2)
  1. NICODERM CQ [Suspect]
     Indication: SMOKING CESSATION THERAPY
     Dosage: 14MG PER DAY
     Route: 062
     Dates: start: 20061101, end: 20080204
  2. INFLUENZA VACCINE [Concomitant]

REACTIONS (13)
  - ABASIA [None]
  - ABDOMINAL PAIN LOWER [None]
  - BURNING SENSATION [None]
  - DROOLING [None]
  - FATIGUE [None]
  - GRAND MAL CONVULSION [None]
  - MYALGIA [None]
  - NAUSEA [None]
  - PETIT MAL EPILEPSY [None]
  - RHINORRHOEA [None]
  - SWOLLEN TONGUE [None]
  - TONGUE BITING [None]
  - TONGUE BLACK HAIRY [None]
